FAERS Safety Report 18607061 (Version 2)
Quarter: 2020Q4

REPORT INFORMATION
  Report Type: Spontaneous
  Country: IL (occurrence: IL)
  Receive Date: 20201212
  Receipt Date: 20201217
  Transmission Date: 20210114
  Serious: Yes (Other)
  Sender: FDA-Public Use
  Company Number: IL-ROCHE-2731169

PATIENT
  Sex: Female

DRUGS (2)
  1. PERJETA [Suspect]
     Active Substance: PERTUZUMAB
     Indication: HER2 POSITIVE BREAST CANCER
     Dosage: 6-THERAPIES
     Route: 065
  2. HERCEPTIN [Suspect]
     Active Substance: TRASTUZUMAB
     Indication: HER2 POSITIVE BREAST CANCER
     Dosage: 6 TREATMENT, DISCONTINUED
     Route: 065

REACTIONS (2)
  - Cardiac dysfunction [Unknown]
  - Drug hypersensitivity [Unknown]
